FAERS Safety Report 23726671 (Version 3)
Quarter: 2024Q2

REPORT INFORMATION
  Report Type: Report from Study
  Country: DE (occurrence: DE)
  Receive Date: 20240410
  Receipt Date: 20240510
  Transmission Date: 20240716
  Serious: Yes (Hospitalization, Other)
  Sender: FDA-Public Use
  Company Number: DE-ARGENX-2024-ARGX-DE002378

PATIENT

DRUGS (1)
  1. VYVGART [Suspect]
     Active Substance: EFGARTIGIMOD ALFA-FCAB
     Indication: Myasthenia gravis
     Dosage: 1000 MG
     Route: 058
     Dates: start: 20240124

REACTIONS (4)
  - Arthralgia [Recovered/Resolved]
  - Pain [Recovered/Resolved]
  - Chest discomfort [Recovered/Resolved]
  - Tension [Unknown]

NARRATIVE: CASE EVENT DATE: 20240328
